FAERS Safety Report 5021398-X (Version None)
Quarter: 2006Q2

REPORT INFORMATION
  Report Type: 
  Country: None (occurrence: None)
  Receive Date: 20060608
  Receipt Date: 20060529
  Transmission Date: 20061013
  Serious: Yes (Other)
  Sender: FDA-Public Use
  Company Number: PHBS2006FI08114

PATIENT
  Age: 90 Year
  Sex: Male

DRUGS (5)
  1. ZOMETA [Suspect]
     Indication: MULTIPLE MYELOMA
     Dosage: 4 MG, UNK
     Route: 042
     Dates: start: 20050915, end: 20060415
  2. ALKERAN [Concomitant]
     Indication: MULTIPLE MYELOMA
     Dosage: 16 MG, FOR 14 DAYS EVERY 4 WEEKS
     Route: 048
     Dates: start: 20050915
  3. PREDNISOLONE [Concomitant]
     Indication: MULTIPLE MYELOMA
     Dosage: 60 MG, FOR 4 DAYS EVERY 4 WEEKS
     Route: 048
     Dates: start: 20050915
  4. PANACOD [Concomitant]
     Indication: MULTIPLE MYELOMA
     Dosage: 1000/60 MG/D
     Route: 065
     Dates: start: 20050919
  5. PANACOD [Concomitant]
     Dosage: 1500/90 MG/D
     Route: 065

REACTIONS (2)
  - GINGIVAL DISORDER [None]
  - OSTEONECROSIS [None]
